FAERS Safety Report 14819705 (Version 1)
Quarter: 2018Q2

REPORT INFORMATION
  Report Type: Report from Study
  Country: DE (occurrence: DE)
  Receive Date: 20180427
  Receipt Date: 20180427
  Transmission Date: 20180711
  Serious: Yes (Life-Threatening)
  Sender: FDA-Public Use
  Company Number: DE-ROCHE-313090

PATIENT
  Age: 86 Year
  Sex: Female

DRUGS (24)
  1. NOCTAMID [Suspect]
     Active Substance: LORMETAZEPAM
     Indication: SEDATIVE THERAPY
     Route: 048
     Dates: start: 20000913, end: 20000913
  2. CORVATON RETARD [Concomitant]
     Active Substance: MOLSIDOMINE
     Indication: CORONARY ARTERY DISEASE
     Route: 048
     Dates: start: 20000820, end: 20000914
  3. NOVALGIN (METAMIZOLE SODIUM) [Suspect]
     Active Substance: METAMIZOLE SODIUM
     Indication: PAIN
     Route: 048
     Dates: start: 20000820, end: 20000917
  4. ORTHO-GYNEST [Concomitant]
     Indication: VAGINAL DISORDER
     Route: 067
     Dates: start: 20000820, end: 20000906
  5. GLUCOSE [Concomitant]
     Active Substance: DEXTROSE
     Indication: CARDIOVASCULAR DISORDER
     Route: 042
     Dates: start: 20000913, end: 20000913
  6. VIOXX [Suspect]
     Active Substance: ROFECOXIB
     Indication: RHEUMATIC DISORDER
     Route: 048
     Dates: start: 20000907, end: 20000917
  7. PLAVIX [Suspect]
     Active Substance: CLOPIDOGREL BISULFATE
     Indication: ANTICOAGULANT THERAPY
     Route: 048
     Dates: start: 20000913, end: 20000917
  8. EUGLUCON [Suspect]
     Active Substance: GLYBURIDE
     Indication: DIABETES MELLITUS
     Route: 048
     Dates: start: 20000820, end: 20000917
  9. DECORTIN [Concomitant]
     Active Substance: PREDNISONE
     Indication: DERMATITIS BULLOUS
     Route: 048
     Dates: start: 20000820, end: 20000917
  10. INSULIN [Concomitant]
     Active Substance: INSULIN NOS
     Indication: TYPE 2 DIABETES MELLITUS
     Dosage: SUBCUTANEOUS EXCEPT ON 13 SEP 2000 WHEN GIVEN INTRAVENOUSLY.
     Route: 050
     Dates: start: 20000820, end: 20000917
  11. XYLOCAINE [Suspect]
     Active Substance: LIDOCAINE HYDROCHLORIDE
     Indication: LOCAL ANAESTHESIA
     Route: 058
     Dates: start: 20000913, end: 20000913
  12. COTRIM [Concomitant]
     Active Substance: SULFAMETHOXAZOLE\TRIMETHOPRIM
     Indication: URINARY TRACT INFECTION
     Route: 048
     Dates: start: 20000916, end: 20000917
  13. RINGERS SOLUTION [Concomitant]
     Active Substance: CALCIUM CHLORIDE\POTASSIUM CHLORIDE\SODIUM CHLORIDE
     Indication: ELECTROLYTE DEPLETION
     Route: 042
     Dates: start: 20000913, end: 20000914
  14. DIAZEPAM. [Suspect]
     Active Substance: DIAZEPAM
     Indication: SEDATION
     Route: 042
     Dates: start: 20000913, end: 20000913
  15. ASPIRIN. [Suspect]
     Active Substance: ASPIRIN
     Indication: ANTICOAGULANT THERAPY
     Route: 048
     Dates: start: 20000828, end: 20000831
  16. ANTRA MUPS [Concomitant]
     Active Substance: OMEPRAZOLE MAGNESIUM
     Indication: PROPHYLAXIS
     Route: 048
     Dates: start: 20000820, end: 20000917
  17. ASPIRIN. [Suspect]
     Active Substance: ASPIRIN
     Route: 048
     Dates: start: 20000914, end: 20000917
  18. UNAT [Concomitant]
     Active Substance: TORSEMIDE
     Indication: CARDIAC FAILURE
     Route: 048
     Dates: start: 20000820, end: 20000917
  19. DUROGESIC [Concomitant]
     Active Substance: FENTANYL
     Indication: PAIN
     Route: 062
     Dates: start: 20000820, end: 20000916
  20. NORADRENALINE [Suspect]
     Active Substance: NOREPINEPHRINE
     Indication: CORONARY ARTERY DISEASE
     Route: 042
     Dates: start: 20000913, end: 20000913
  21. CATAPRESAN [Suspect]
     Active Substance: CLONIDINE
     Indication: CORONARY ARTERY DISEASE
     Route: 042
     Dates: start: 20000913, end: 20000913
  22. FRAGMIN P [Concomitant]
     Active Substance: DALTEPARIN SODIUM
     Indication: ANTICOAGULANT THERAPY
     Route: 058
     Dates: start: 20000820, end: 20000917
  23. MONO MACK DEPOT [Concomitant]
     Active Substance: ISOSORBIDE MONONITRATE
     Indication: ANGINA PECTORIS
     Route: 048
     Dates: start: 20000820, end: 20000917
  24. TAVEGIL [Concomitant]
     Active Substance: CLEMASTINE FUMARATE
     Indication: PEMPHIGOID
     Route: 048
     Dates: start: 20000820, end: 20000828

REACTIONS (6)
  - Genital erosion [Recovering/Resolving]
  - Toxic epidermal necrolysis [Recovering/Resolving]
  - Mouth ulceration [Recovering/Resolving]
  - Blister [Recovering/Resolving]
  - Conjunctivitis [Recovering/Resolving]
  - Generalised erythema [Recovering/Resolving]

NARRATIVE: CASE EVENT DATE: 20000916
